FAERS Safety Report 16239846 (Version 1)
Quarter: 2019Q2

REPORT INFORMATION
  Report Type: Spontaneous
  Country: US (occurrence: US)
  Receive Date: 20190425
  Receipt Date: 20190425
  Transmission Date: 20190711
  Serious: Yes (Other)
  Sender: FDA-Public Use
  Company Number: US-PFIZER INC-2019169247

PATIENT
  Age: 29 Year
  Sex: Male

DRUGS (13)
  1. DEXAMETHASONE. [Concomitant]
     Active Substance: DEXAMETHASONE
     Indication: ENCEPHALITIS
     Dosage: UNK
  2. DEXAMETHASONE. [Concomitant]
     Active Substance: DEXAMETHASONE
     Indication: MENINGITIS
     Dosage: 2 MG, 3X/DAY
     Route: 048
  3. METHOTREXATE SODIUM. [Suspect]
     Active Substance: METHOTREXATE SODIUM
     Indication: LEUKAEMIA
     Dosage: 192 MG, UNK (192 MG ADMINISTERED AT THE L3-L4 INTERSPACE)
     Route: 037
  4. METHOTREXATE SODIUM. [Suspect]
     Active Substance: METHOTREXATE SODIUM
     Indication: ENCEPHALITIS
     Dosage: 15 MG/M2, UNK(24 MG PER DOSE, EVERY 3 TO 4 DAYS,TOTAL OF EIGHT I.T. INJECTIONS OVER A 24-DAY PERIO)
  5. DOXORUBICIN [Concomitant]
     Active Substance: DOXORUBICIN
     Indication: ENCEPHALITIS
     Dosage: UNK
  6. VINCRISTINE [Concomitant]
     Active Substance: VINCRISTINE
     Indication: MENINGITIS
  7. BENZYL ALCOHOL [Concomitant]
     Active Substance: BENZYL ALCOHOL
     Dosage: 108 MG, UNK
  8. METHOTREXATE SODIUM. [Suspect]
     Active Substance: METHOTREXATE SODIUM
     Indication: MENINGITIS
  9. DOXORUBICIN [Concomitant]
     Active Substance: DOXORUBICIN
     Indication: MENINGITIS
  10. VINCRISTINE [Concomitant]
     Active Substance: VINCRISTINE
     Indication: ENCEPHALITIS
     Dosage: UNK
  11. CYTOSINE ARABINOSIDE [Concomitant]
     Active Substance: CYTARABINE
     Indication: MENINGITIS
     Dosage: UNK
  12. CYTOSINE ARABINOSIDE [Concomitant]
     Active Substance: CYTARABINE
     Indication: ENCEPHALITIS
  13. SODIUM CHLORIDE. [Concomitant]
     Active Substance: SODIUM CHLORIDE
     Indication: BACTERIAL INFECTION
     Dosage: UNK (ADMINISTERED IN 15 CM3)

REACTIONS (2)
  - Paraplegia [Recovering/Resolving]
  - Peripheral motor neuropathy [Recovering/Resolving]
